FAERS Safety Report 12045816 (Version 26)
Quarter: 2016Q3

REPORT INFORMATION
  Report Type: Report from Study
  Country: CA (occurrence: CA)
  Receive Date: 20160208
  Receipt Date: 20160722
  Transmission Date: 20161109
  Serious: Yes (Other)
  Sender: FDA-Public Use
  Company Number: CA-ROCHE-1707409

PATIENT
  Age: 64 Year
  Sex: Female

DRUGS (11)
  1. SYNTHROID [Concomitant]
     Active Substance: LEVOTHYROXINE SODIUM
  2. ATORVASTATIN [Concomitant]
     Active Substance: ATORVASTATIN
  3. SIMPONI [Concomitant]
     Active Substance: GOLIMUMAB
  4. ACTEMRA [Suspect]
     Active Substance: TOCILIZUMAB
     Indication: RHEUMATOID ARTHRITIS
     Route: 042
     Dates: start: 20160119
  5. ACTEMRA [Suspect]
     Active Substance: TOCILIZUMAB
     Route: 042
     Dates: start: 20160428, end: 20160630
  6. PREDNISONE. [Suspect]
     Active Substance: PREDNISONE
     Indication: PRODUCT USED FOR UNKNOWN INDICATION
     Route: 065
  7. TYLENOL ARTHRITIS PAIN [Concomitant]
     Active Substance: ACETAMINOPHEN
     Indication: ARTHRITIS
  8. CEFADROXIL. [Concomitant]
     Active Substance: CEFADROXIL
  9. CORTISONE [Concomitant]
     Active Substance: CORTISONE\HYDROCORTISONE
  10. ACTEMRA [Suspect]
     Active Substance: TOCILIZUMAB
     Route: 042
     Dates: start: 20160401
  11. BETADERM (CANADA) [Concomitant]

REACTIONS (33)
  - Joint effusion [Unknown]
  - Chest pain [Unknown]
  - Dermatitis contact [Not Recovered/Not Resolved]
  - Pain [Unknown]
  - Arthralgia [Not Recovered/Not Resolved]
  - Fatigue [Not Recovered/Not Resolved]
  - Peripheral swelling [Not Recovered/Not Resolved]
  - Nocturia [Unknown]
  - Vulvovaginal mycotic infection [Unknown]
  - Plantar erythema [Not Recovered/Not Resolved]
  - Rash erythematous [Not Recovered/Not Resolved]
  - Pruritus [Not Recovered/Not Resolved]
  - Skin exfoliation [Not Recovered/Not Resolved]
  - Pain in extremity [Not Recovered/Not Resolved]
  - Pyrexia [Unknown]
  - Haemorrhoids [Not Recovered/Not Resolved]
  - Oropharyngeal pain [Unknown]
  - Acne [Not Recovered/Not Resolved]
  - Laceration [Recovering/Resolving]
  - Diarrhoea [Unknown]
  - Drug ineffective [Unknown]
  - Skin atrophy [Not Recovered/Not Resolved]
  - Vaginal infection [Unknown]
  - Madarosis [Not Recovered/Not Resolved]
  - Oxygen saturation decreased [Unknown]
  - Erythema [Not Recovered/Not Resolved]
  - Sinusitis [Recovered/Resolved]
  - Acne [Unknown]
  - Malaise [Unknown]
  - Cataract [Not Recovered/Not Resolved]
  - Abdominal pain lower [Recovered/Resolved]
  - Dry skin [Not Recovered/Not Resolved]
  - Myalgia [Unknown]

NARRATIVE: CASE EVENT DATE: 20160119
